FAERS Safety Report 7240889-4 (Version None)
Quarter: 2011Q1

REPORT INFORMATION
  Report Type: 
  Country: None (occurrence: None)
  Receive Date: 20110124
  Receipt Date: 20110110
  Transmission Date: 20110831
  Serious: Yes (Other)
  Sender: FDA-Public Use
  Company Number: PHFR2011GB00674

PATIENT
  Sex: Male

DRUGS (1)
  1. CLOZARIL [Suspect]
     Indication: SCHIZOPHRENIA
     Dosage: UNK
     Route: 048
     Dates: start: 19990726

REACTIONS (5)
  - BALANCE DISORDER [None]
  - OROPHARYNGEAL PAIN [None]
  - OVERWEIGHT [None]
  - DIABETES MELLITUS [None]
  - HYPERTENSION [None]
